FAERS Safety Report 11530195 (Version 1)
Quarter: 2015Q3

REPORT INFORMATION
  Report Type: Spontaneous
  Country: US (occurrence: None)
  Receive Date: 20150918
  Receipt Date: 20150918
  Transmission Date: 20151125
  Serious: Yes (Other)
  Sender: FDA-Public Use
  Company Number: None

PATIENT
  Age: 54 Year
  Sex: Male
  Weight: 93 kg

DRUGS (7)
  1. HEPARIN [Suspect]
     Active Substance: HEPARIN SODIUM
     Indication: ANTICOAGULANT THERAPY
     Dosage: 10,000 UNITS ONE TIME INTRAVENOUS
     Route: 042
     Dates: start: 20150521, end: 20150521
  2. BENADRYL [Concomitant]
     Active Substance: DIPHENHYDRAMINE HYDROCHLORIDE
  3. SOLU-MEDROL [Concomitant]
     Active Substance: METHYLPREDNISOLONE SODIUM SUCCINATE
  4. INTEGRILIN [Concomitant]
     Active Substance: EPTIFIBATIDE
  5. LIDOCAINE. [Concomitant]
     Active Substance: LIDOCAINE
  6. HEPARIN [Suspect]
     Active Substance: HEPARIN SODIUM
     Indication: CATHETERISATION CARDIAC
     Dosage: 10,000 UNITS ONE TIME INTRAVENOUS
     Route: 042
     Dates: start: 20150521, end: 20150521
  7. EFFIENT [Concomitant]
     Active Substance: PRASUGREL HYDROCHLORIDE

REACTIONS (2)
  - Post procedural haemorrhage [None]
  - Coagulopathy [None]

NARRATIVE: CASE EVENT DATE: 20150521
